FAERS Safety Report 8102133-5 (Version None)
Quarter: 2012Q1

REPORT INFORMATION
  Report Type: 
  Country: None (occurrence: None)
  Receive Date: 20120131
  Receipt Date: 20120125
  Transmission Date: 20120608
  Serious: Yes (Other)
  Sender: FDA-Public Use
  Company Number: PHHY2012GB006608

PATIENT
  Age: 25 Year
  Sex: Female
  Weight: 62.5 kg

DRUGS (1)
  1. AZITHROMYCIN [Suspect]
     Indication: CHLAMYDIAL INFECTION
     Dosage: 1 G, UNK
     Route: 048
     Dates: start: 20120111, end: 20120111

REACTIONS (5)
  - HYPERHIDROSIS [None]
  - BACK PAIN [None]
  - NAUSEA [None]
  - HYPOTENSION [None]
  - DYSPNOEA [None]
